FAERS Safety Report 4666010-4 (Version None)
Quarter: 2005Q2

REPORT INFORMATION
  Report Type: 
  Country: None (occurrence: None)
  Receive Date: 20050517
  Receipt Date: 20050412
  Transmission Date: 20051028
  Serious: No
  Sender: FDA-Public Use
  Company Number: S05-USA-01908-01

PATIENT
  Age: 91 Year
  Sex: Female

DRUGS (4)
  1. NAMENDA [Suspect]
     Indication: DEMENTIA ALZHEIMER'S TYPE
     Dosage: 5 MG QD; PO
     Route: 048
     Dates: start: 20050408
  2. NORVASC [Concomitant]
  3. DIURETIC (NOS) [Concomitant]
  4. PREVACID [Concomitant]

REACTIONS (1)
  - CONFUSIONAL STATE [None]
